FAERS Safety Report 22143420 (Version 6)
Quarter: 2023Q2

REPORT INFORMATION
  Report Type: Report from Study
  Country: CA (occurrence: CA)
  Receive Date: 20230327
  Receipt Date: 20230613
  Transmission Date: 20230721
  Serious: Yes (Life-Threatening, Other)
  Sender: FDA-Public Use
  Company Number: CA-KOREA IPSEN Pharma-2023-06301

PATIENT
  Age: 54 Year
  Sex: Female

DRUGS (11)
  1. LANREOTIDE ACETATE [Suspect]
     Active Substance: LANREOTIDE ACETATE
     Indication: Gastroenteropancreatic neuroendocrine tumour disease
     Route: 058
     Dates: start: 20230207
  2. APIXABAN [Concomitant]
     Active Substance: APIXABAN
  3. MORPHINE [Concomitant]
     Active Substance: MORPHINE
  4. DEXAMETHASONE [Concomitant]
     Active Substance: DEXAMETHASONE
  5. PANTOPRAZOLE [Concomitant]
     Active Substance: PANTOPRAZOLE
  6. SYMBICORT [Concomitant]
     Active Substance: BUDESONIDE\FORMOTEROL FUMARATE DIHYDRATE
  7. VENTOLIN [Concomitant]
     Active Substance: ALBUTEROL SULFATE
  8. SODIUM CHLORIDE [Concomitant]
     Active Substance: SODIUM CHLORIDE
     Dosage: 1L OVER 4/HRS FOR HYDRATION
  9. LACTULOSE [Concomitant]
     Active Substance: LACTULOSE
     Dosage: 15-30 CC BID
  10. HALDOL [Concomitant]
     Active Substance: HALOPERIDOL
     Dosage: 1 MG
  11. TRAZODONE [Concomitant]
     Active Substance: TRAZODONE HYDROCHLORIDE
     Dosage: 50 MG

REACTIONS (10)
  - Terminal state [Unknown]
  - Delirium [Unknown]
  - Illness [Unknown]
  - Off label use [Unknown]
  - Off label use [Unknown]
  - Cough [Unknown]
  - Hypotension [Unknown]
  - Vomiting [Recovered/Resolved]
  - Malnutrition [Not Recovered/Not Resolved]
  - General physical health deterioration [Not Recovered/Not Resolved]

NARRATIVE: CASE EVENT DATE: 20230315
